FAERS Safety Report 24931798 (Version 1)
Quarter: 2025Q1

REPORT INFORMATION
  Report Type: Report from Study
  Country: US (occurrence: US)
  Receive Date: 20250205
  Receipt Date: 20250205
  Transmission Date: 20250409
  Serious: No
  Sender: EXELIXIS
  Company Number: US-EXELIXIS-CABO-24078801

PATIENT
  Sex: Male
  Weight: 66.19 kg

DRUGS (2)
  1. CABOMETYX [Suspect]
     Active Substance: CABOZANTINIB S-MALATE
     Indication: Renal cancer
  2. WELIREG [Suspect]
     Active Substance: BELZUTIFAN
     Indication: Renal cancer

REACTIONS (3)
  - Blood glucose abnormal [Unknown]
  - Weight increased [Unknown]
  - Constipation [Unknown]
